FAERS Safety Report 15077208 (Version 1)
Quarter: 2018Q2

REPORT INFORMATION
  Report Type: Report from Study
  Country: CA (occurrence: CA)
  Receive Date: 20180627
  Receipt Date: 20180627
  Transmission Date: 20180711
  Serious: Yes (Disabling)
  Sender: FDA-Public Use
  Company Number: CA-ACTELION-A-NJ2018-174158

PATIENT
  Age: 35 Year
  Sex: Female

DRUGS (18)
  1. PARIET [Concomitant]
     Active Substance: RABEPRAZOLE SODIUM
  2. FOLIC ACID. [Concomitant]
     Active Substance: FOLIC ACID
  3. OXYGEN. [Concomitant]
     Active Substance: OXYGEN
     Dosage: 3 L, PER MIN
  4. SLOW K [Concomitant]
     Active Substance: POTASSIUM CHLORIDE
  5. COLACE [Concomitant]
     Active Substance: DOCUSATE SODIUM
  6. BENADRYL [Concomitant]
     Active Substance: DIPHENHYDRAMINE HYDROCHLORIDE
  7. VITAMIN B12 [Concomitant]
     Active Substance: CYANOCOBALAMIN
  8. ONDANSETRON [Concomitant]
     Active Substance: ONDANSETRON
  9. ATIVAN [Concomitant]
     Active Substance: LORAZEPAM
  10. TRACLEER [Suspect]
     Active Substance: BOSENTAN
     Indication: PULMONARY ARTERIAL HYPERTENSION
     Dosage: 125 MG, UNK
     Route: 048
     Dates: start: 20170322
  11. AMITRIPTYLINE [Concomitant]
     Active Substance: AMITRIPTYLINE
  12. MULTIVITAMIN [Concomitant]
     Active Substance: VITAMINS
  13. KEFLEX [Concomitant]
     Active Substance: CEPHALEXIN
  14. LASIX [Concomitant]
     Active Substance: FUROSEMIDE
  15. MORPHINE [Concomitant]
     Active Substance: MORPHINE
     Dosage: UNK, PRN
  16. LOVENOX [Concomitant]
     Active Substance: ENOXAPARIN SODIUM
  17. ESCITALOPRAM [Concomitant]
     Active Substance: ESCITALOPRAM OXALATE
  18. GRAVOL [Concomitant]
     Active Substance: DIMENHYDRINATE

REACTIONS (3)
  - Influenza [Not Recovered/Not Resolved]
  - Cough [Not Recovered/Not Resolved]
  - Dyspnoea [Not Recovered/Not Resolved]
